FAERS Safety Report 23028037 (Version 3)
Quarter: 2025Q1

REPORT INFORMATION
  Report Type: Spontaneous
  Country: PK (occurrence: PK)
  Receive Date: 20231004
  Receipt Date: 20250228
  Transmission Date: 20250409
  Serious: Yes (Disabling, Other)
  Sender: ROCHE
  Company Number: PK-ROCHE-3430789

PATIENT

DRUGS (1)
  1. AVASTIN [Suspect]
     Active Substance: BEVACIZUMAB
     Indication: Diabetic eye disease
     Route: 050

REACTIONS (6)
  - Blindness [Unknown]
  - Off label use [Unknown]
  - Product counterfeit [Unknown]
  - Swelling [Unknown]
  - Blindness unilateral [Unknown]
  - Erythema [Unknown]
